FAERS Safety Report 6886192-3 (Version None)
Quarter: 2010Q3

REPORT INFORMATION
  Report Type: 
  Country: None (occurrence: None)
  Receive Date: 20100729
  Receipt Date: 20080805
  Transmission Date: 20110219
  Serious: No
  Sender: FDA-Public Use
  Company Number: US-PFIZER INC-2008052816

PATIENT
  Sex: Female
  Weight: 68.2 kg

DRUGS (7)
  1. CELEBREX [Suspect]
     Indication: ARTHRALGIA
     Route: 048
     Dates: start: 20080211
  2. CELEBREX [Suspect]
     Indication: CARPAL TUNNEL SYNDROME
  3. LISINOPRIL [Concomitant]
  4. NEXIUM [Concomitant]
  5. SIMVASTATIN [Concomitant]
  6. VALIUM [Concomitant]
  7. CALCIUM [Concomitant]

REACTIONS (4)
  - ARTHRALGIA [None]
  - MYALGIA [None]
  - OEDEMA PERIPHERAL [None]
  - PAIN IN EXTREMITY [None]
